FAERS Safety Report 9261811 (Version 1)
Quarter: 2013Q2

REPORT INFORMATION
  Report Type: Spontaneous
  Country: BR (occurrence: BR)
  Receive Date: 20130429
  Receipt Date: 20130429
  Transmission Date: 20140414
  Serious: Yes (Other)
  Sender: FDA-Public Use
  Company Number: PHHY2013BR041196

PATIENT
  Age: 55 Year
  Sex: Female

DRUGS (4)
  1. BUFFERIN [Suspect]
     Indication: BLOOD DISORDER
     Dosage: 1 DF, UNK
     Route: 048
     Dates: start: 2010
  2. CLOPIDOGREL [Concomitant]
     Indication: INFARCTION
  3. ATENOLOL [Concomitant]
     Indication: HEART RATE
     Dosage: 50 MG, UNK
  4. CAPTOPRIL [Concomitant]
     Indication: HYPERTENSION
     Dosage: 25 MG, UNK

REACTIONS (1)
  - Influenza [Recovered/Resolved]
